FAERS Safety Report 9184884 (Version 1)
Quarter: 2013Q1

REPORT INFORMATION
  Report Type: Spontaneous
  Country: US (occurrence: US)
  Receive Date: 20130325
  Receipt Date: 20130325
  Transmission Date: 20140127
  Serious: No
  Sender: FDA-Public Use
  Company Number: US-BRISTOL-MYERS SQUIBB COMPANY-16515405

PATIENT
  Age: 52 Year
  Sex: Female
  Weight: 81.63 kg

DRUGS (4)
  1. ERBITUX [Suspect]
     Indication: COLON CANCER
     Dosage: NO OF TREATMENTS:4
     Dates: start: 201203
  2. ERBITUX [Suspect]
     Indication: RECTAL CANCER
     Dosage: NO OF TREATMENTS:4
     Dates: start: 201203
  3. ASPIRIN [Concomitant]
  4. CALCIUM [Concomitant]

REACTIONS (3)
  - Rash [Recovering/Resolving]
  - Acne [Recovering/Resolving]
  - Dry skin [Recovering/Resolving]
